APPROVED DRUG PRODUCT: CLOBAZAM
Active Ingredient: CLOBAZAM
Strength: 2.5MG/ML
Dosage Form/Route: SUSPENSION;ORAL
Application: A211032 | Product #001
Applicant: TEVA PHARMACEUTICALS USA
Approved: Jan 31, 2020 | RLD: No | RS: No | Type: DISCN